FAERS Safety Report 8622258-5 (Version None)
Quarter: 2012Q3

REPORT INFORMATION
  Report Type: 
  Country: None (occurrence: None)
  Receive Date: 20120827
  Receipt Date: 20120821
  Transmission Date: 20120928
  Serious: Yes (Death, Hospitalization)
  Sender: FDA-Public Use
  Company Number: US-BRISTOL-MYERS SQUIBB COMPANY-16881120

PATIENT
  Sex: Male

DRUGS (1)
  1. ABILIFY [Suspect]

REACTIONS (3)
  - COMPLETED SUICIDE [None]
  - COMA [None]
  - SUICIDE ATTEMPT [None]
